FAERS Safety Report 9476773 (Version 1)
Quarter: 2013Q3

REPORT INFORMATION
  Report Type: Spontaneous
  Country: US (occurrence: US)
  Receive Date: 20130826
  Receipt Date: 20130826
  Transmission Date: 20140515
  Serious: Yes (Hospitalization)
  Sender: FDA-Public Use
  Company Number: US-BRISTOL-MYERS SQUIBB COMPANY-19043512

PATIENT
  Sex: Female

DRUGS (4)
  1. KENALOG-40 INJ [Suspect]
     Route: 037
     Dates: start: 20130604
  2. SODIUM CHLORIDE [Suspect]
     Dosage: INJECTION
  3. OMNIPAQUE [Suspect]
  4. LIDOCAINE [Suspect]
     Dosage: LIDOCAINE 1%

REACTIONS (2)
  - Meningitis [Recovering/Resolving]
  - Off label use [Unknown]
